FAERS Safety Report 10920806 (Version 1)
Quarter: 2015Q1

REPORT INFORMATION
  Report Type: Spontaneous
  Country: US (occurrence: None)
  Receive Date: 20150313
  Receipt Date: 20150313
  Transmission Date: 20150721
  Serious: Yes (Disabling)
  Sender: FDA-Public Use
  Company Number: None

PATIENT
  Age: 37 Year
  Sex: Female
  Weight: 46.27 kg

DRUGS (1)
  1. CIPROFLOXIN [Suspect]
     Active Substance: CIPROFLOXACIN
     Indication: URINARY TRACT INFECTION
     Route: 048

REACTIONS (9)
  - Tendon disorder [None]
  - Asthenia [None]
  - Ear disorder [None]
  - Arthralgia [None]
  - Neuralgia [None]
  - Muscle atrophy [None]
  - Functional gastrointestinal disorder [None]
  - Headache [None]
  - Alopecia [None]

NARRATIVE: CASE EVENT DATE: 20120721
